FAERS Safety Report 7392870-2 (Version None)
Quarter: 2011Q2

REPORT INFORMATION
  Report Type: 
  Country: None (occurrence: None)
  Receive Date: 20110404
  Receipt Date: 20110324
  Transmission Date: 20111010
  Serious: Yes (Other)
  Sender: FDA-Public Use
  Company Number: US-ASTRAZENECA-2011SE07107

PATIENT
  Age: 66 Year
  Sex: Female

DRUGS (3)
  1. PRILOSEC [Interacting]
     Route: 048
  2. ARIMIDEX [Suspect]
     Indication: BREAST CANCER
     Route: 048
  3. NEXIUM [Concomitant]

REACTIONS (4)
  - DRUG INTERACTION [None]
  - BREAST CANCER [None]
  - ABDOMINAL DISCOMFORT [None]
  - IMPAIRED GASTRIC EMPTYING [None]
